FAERS Safety Report 7819424-5 (Version None)
Quarter: 2011Q4

REPORT INFORMATION
  Report Type: 
  Country: None (occurrence: None)
  Receive Date: 20111018
  Receipt Date: 20110202
  Transmission Date: 20120403
  Serious: No
  Sender: FDA-Public Use
  Company Number: US-ASTRAZENECA-2010SE58158

PATIENT
  Age: 56 Year
  Sex: Female
  Weight: 63.5 kg

DRUGS (6)
  1. SYMBICORT [Suspect]
     Dosage: 160/4.5 MCG 2 PUFFS BID
     Route: 055
     Dates: start: 20101205, end: 20101205
  2. ASPIRIN [Concomitant]
  3. HORMONE CREAM [Concomitant]
     Route: 061
  4. ATIVAN [Concomitant]
     Dosage: PRN
  5. CYTOMEL [Concomitant]
  6. SYNTHROID [Concomitant]

REACTIONS (12)
  - GROIN PAIN [None]
  - NAUSEA [None]
  - AUTOIMMUNE DISORDER [None]
  - BLOOD PRESSURE INCREASED [None]
  - THROAT IRRITATION [None]
  - PRURITUS [None]
  - RASH [None]
  - OROPHARYNGEAL PAIN [None]
  - HEADACHE [None]
  - PALPITATIONS [None]
  - COUGH [None]
  - RASH PRURITIC [None]
